APPROVED DRUG PRODUCT: ELIGLUSTAT TARTRATE
Active Ingredient: ELIGLUSTAT TARTRATE
Strength: EQ 84MG BASE
Dosage Form/Route: CAPSULE;ORAL
Application: A212463 | Product #001 | TE Code: AB
Applicant: AIZANT DRUG RESEARCH SOLUTIONS PVT LTD
Approved: Sep 8, 2021 | RLD: No | RS: No | Type: RX